FAERS Safety Report 4861640-9 (Version None)
Quarter: 2005Q4

REPORT INFORMATION
  Report Type: 
  Country: None (occurrence: None)
  Receive Date: 20051129
  Receipt Date: 20050912
  Transmission Date: 20060501
  Serious: Yes (Disabling, Other)
  Sender: FDA-Public Use
  Company Number: WAES 0507USA02763

PATIENT
  Age: 74 Year
  Sex: Male
  Weight: 94.8018 kg

DRUGS (2)
  1. VYTORIN [Suspect]
     Indication: BLOOD CHOLESTEROL INCREASED
     Dosage: PO
     Route: 048
  2. VYTORIN [Suspect]
     Indication: LIPIDS INCREASED
     Dosage: PO
     Route: 048

REACTIONS (1)
  - POLYMYALGIA RHEUMATICA [None]
